FAERS Safety Report 13373583 (Version 2)
Quarter: 2017Q2

REPORT INFORMATION
  Report Type: Spontaneous
  Country: US (occurrence: US)
  Receive Date: 20170327
  Receipt Date: 20170420
  Transmission Date: 20170830
  Serious: Yes (Hospitalization, Other)
  Sender: FDA-Public Use
  Company Number: US-PFIZER INC-2017060017

PATIENT
  Age: 68 Year
  Sex: Female

DRUGS (2)
  1. XELJANZ [Suspect]
     Active Substance: TOFACITINIB CITRATE
     Indication: RHEUMATOID ARTHRITIS
     Dosage: 5 MG, 2X/DAY
     Dates: start: 20131213, end: 201612
  2. LEFLUNOMIDE. [Concomitant]
     Active Substance: LEFLUNOMIDE
     Dosage: 20 MG, 1X/DAY (ONCE A DAY)
     Dates: start: 201312, end: 201612

REACTIONS (5)
  - Aortic valve disease [Unknown]
  - Cardiac failure congestive [Not Recovered/Not Resolved]
  - Sinusitis [Unknown]
  - Cardiac murmur [Unknown]
  - Arthralgia [Unknown]
